FAERS Safety Report 4489595-X (Version None)
Quarter: 2004Q4

REPORT INFORMATION
  Report Type: 
  Country: None (occurrence: None)
  Receive Date: 20041101
  Receipt Date: 20041008
  Transmission Date: 20050328
  Serious: Yes (Other)
  Sender: FDA-Public Use
  Company Number: PHEH2004US10893

PATIENT
  Age: 70 Year
  Sex: Male

DRUGS (12)
  1. GLEEVEC [Suspect]
     Indication: CHRONIC MYELOID LEUKAEMIA
     Dosage: 400 MG, QD
     Route: 048
     Dates: start: 20020404, end: 20020429
  2. GLEEVEC [Suspect]
     Dosage: 300 MG, QD
     Route: 048
     Dates: start: 20020524
  3. PRAVACHOL [Concomitant]
     Dosage: 20 MG, QD
  4. CARDENE [Concomitant]
     Dosage: 8 MG, QD
     Dates: end: 20020428
  5. ALDACTONE [Concomitant]
     Dosage: 25 MG, QD
  6. LASIX [Concomitant]
     Dosage: 160 MG, QD
     Dates: end: 20020426
  7. LASIX [Concomitant]
     Dosage: 80 MG, QD
     Dates: start: 20020426
  8. LOTENSIN [Concomitant]
     Dosage: 20/25 X2, QD
  9. POTASSIUM [Concomitant]
  10. COVERA-HS [Concomitant]
     Dosage: 180 MG, QD
     Dates: start: 20020426, end: 20020720
  11. COVERA-HS [Concomitant]
     Dosage: 180 MG, BID
     Dates: start: 20020710
  12. INSULIN [Concomitant]
     Indication: DIABETES MELLITUS

REACTIONS (9)
  - BLOOD CREATININE INCREASED [None]
  - BLOOD GLUCOSE INCREASED [None]
  - BLOOD UREA INCREASED [None]
  - BLOOD URIC ACID INCREASED [None]
  - HAEMATOCRIT DECREASED [None]
  - HAEMOGLOBIN DECREASED [None]
  - RED BLOOD CELL COUNT DECREASED [None]
  - RENAL FAILURE [None]
  - WHITE BLOOD CELL COUNT INCREASED [None]
